FAERS Safety Report 15495649 (Version 3)
Quarter: 2018Q4

REPORT INFORMATION
  Report Type: Report from Study
  Country: JP (occurrence: JP)
  Receive Date: 20181013
  Receipt Date: 20181127
  Transmission Date: 20190205
  Serious: Yes (Death, Other)
  Sender: FDA-Public Use
  Company Number: JP-BRISTOL-MYERS SQUIBB COMPANY-BMS-2018-095925

PATIENT
  Age: 77 Year
  Sex: Male
  Weight: 60 kg

DRUGS (1)
  1. NIVOLUMAB [Suspect]
     Active Substance: NIVOLUMAB
     Indication: MALIGNANT MELANOMA
     Dosage: 2 MG/KG, QD
     Route: 041
     Dates: start: 20160225, end: 20160407

REACTIONS (3)
  - Malignant neoplasm progression [Fatal]
  - Hepatic function abnormal [Not Recovered/Not Resolved]
  - Hypothyroidism [Unknown]

NARRATIVE: CASE EVENT DATE: 20160406
